FAERS Safety Report 13975304 (Version 1)
Quarter: 2017Q3

REPORT INFORMATION
  Report Type: Report from Study
  Country: AR (occurrence: AR)
  Receive Date: 20170915
  Receipt Date: 20170915
  Transmission Date: 20171128
  Serious: Yes (Death, Life-Threatening, Hospitalization, Other)
  Sender: FDA-Public Use
  Company Number: AR-BRISTOL-MYERS SQUIBB COMPANY-BMS-2017-081982

PATIENT
  Age: 47 Year
  Sex: Male

DRUGS (1)
  1. NIVOLUMAB [Suspect]
     Active Substance: NIVOLUMAB
     Indication: LUNG NEOPLASM MALIGNANT
     Dosage: 1 UNK, Q2WK
     Route: 065
     Dates: start: 20170721

REACTIONS (3)
  - Pericardial disease [Unknown]
  - Cardiac arrest [Fatal]
  - Coma [Unknown]

NARRATIVE: CASE EVENT DATE: 20170825
